FAERS Safety Report 10563095 (Version 1)
Quarter: 2014Q4

REPORT INFORMATION
  Report Type: Spontaneous
  Country: US (occurrence: None)
  Receive Date: 20141103
  Receipt Date: 20141103
  Transmission Date: 20150529
  Serious: Yes (Disabling)
  Sender: FDA-Public Use
  Company Number: None

PATIENT
  Age: 65 Year
  Sex: Female
  Weight: 63.5 kg

DRUGS (1)
  1. LEVOFLOXACIN. [Suspect]
     Active Substance: LEVOFLOXACIN
     Indication: URINARY TRACT INFECTION
     Dosage: 1 TABLET/THREE DAYS
     Route: 048
     Dates: start: 20140417, end: 20140419

REACTIONS (12)
  - Panic attack [None]
  - Deafness [None]
  - Anxiety [None]
  - Headache [None]
  - Depression [None]
  - Palpitations [None]
  - Atrial fibrillation [None]
  - Feeling abnormal [None]
  - Dizziness [None]
  - Dyspnoea [None]
  - Tachycardia [None]
  - Paraesthesia [None]

NARRATIVE: CASE EVENT DATE: 20140417
